FAERS Safety Report 21101094 (Version 3)
Quarter: 2023Q1

REPORT INFORMATION
  Report Type: Spontaneous
  Country: FR (occurrence: FR)
  Receive Date: 20220719
  Receipt Date: 20230320
  Transmission Date: 20230417
  Serious: Yes (Other)
  Sender: FDA-Public Use
  Company Number: FR-ROCHE-3123400

PATIENT

DRUGS (1)
  1. RITUXIMAB [Suspect]
     Active Substance: RITUXIMAB
     Dosage: UNK
     Route: 042

REACTIONS (2)
  - Granulomatosis with polyangiitis [Unknown]
  - Treatment failure [Unknown]
